FAERS Safety Report 6340323-2 (Version None)
Quarter: 2009Q3

REPORT INFORMATION
  Report Type: 
  Country: None (occurrence: None)
  Receive Date: 20090904
  Receipt Date: 20070508
  Transmission Date: 20100115
  Serious: Yes (Hospitalization, Other)
  Sender: FDA-Public Use
  Company Number: US-ASTRAZENECA-2006UW22201

PATIENT
  Age: 11839 Day
  Sex: Female
  Weight: 53.5 kg

DRUGS (17)
  1. SEROQUEL [Suspect]
     Indication: DEPRESSION
     Dosage: 50 TO 600 MG
     Route: 048
     Dates: start: 20010326
  2. SEROQUEL [Suspect]
     Indication: SLEEP DISORDER
     Dosage: 50 TO 600 MG
     Route: 048
     Dates: start: 20010326
  3. SEROQUEL [Suspect]
     Route: 048
  4. SEROQUEL [Suspect]
     Route: 048
  5. DEXATRIM [Concomitant]
     Indication: WEIGHT CONTROL
     Dates: start: 19800101, end: 19870101
  6. ABILIFY [Concomitant]
     Dates: start: 20050101, end: 20060101
  7. GEODON [Concomitant]
     Dates: start: 19990101, end: 20000101
  8. RISPERDAL [Concomitant]
     Dates: start: 19940101
  9. CYMBATTA [Concomitant]
  10. TEMAZEPAM [Concomitant]
  11. TRAZODONE HCL [Concomitant]
  12. ATIVAN [Concomitant]
  13. MARIJUANA [Concomitant]
     Dosage: OCCASIONAL USE
  14. SERZONE [Concomitant]
     Route: 048
     Dates: start: 20010404
  15. ACETAMINOPHEN [Concomitant]
     Indication: ARTHRALGIA
     Dosage: 325 MG TABLETS, TK 2 TS PO QID
     Route: 048
     Dates: start: 20010418
  16. PRECOSE [Concomitant]
     Route: 048
     Dates: start: 20010503
  17. SONATA [Concomitant]
     Route: 048
     Dates: start: 20010419

REACTIONS (5)
  - DIABETIC EYE DISEASE [None]
  - DIABETIC KETOACIDOSIS [None]
  - DIABETIC NEUROPATHY [None]
  - HYPOGLYCAEMIA [None]
  - KETOACIDOSIS [None]
